FAERS Safety Report 5058246-8 (Version None)
Quarter: 2006Q2

REPORT INFORMATION
  Report Type: 
  Country: None (occurrence: None)
  Receive Date: 20060627
  Receipt Date: 20050517
  Transmission Date: 20061013
  Serious: Yes (Other)
  Sender: FDA-Public Use
  Company Number: 404970

PATIENT
  Age: 49 Year
  Sex: Female

DRUGS (2)
  1. INTERFERON ALFA (INTERFERON ALFA) [Suspect]
     Indication: HEPATITIS
     Dates: start: 19920615
  2. RIBAVIRIN [Suspect]
     Indication: HEPATITIS
     Dates: start: 19920615

REACTIONS (1)
  - SARCOIDOSIS [None]
